FAERS Safety Report 8953166 (Version 1)
Quarter: 2012Q4

REPORT INFORMATION
  Report Type: 
  Country: US (occurrence: US)
  Receive Date: 20121205
  Receipt Date: 20121205
  Transmission Date: 20130627
  Serious: Yes (Hospitalization)
  Sender: FDA-Public Use
  Company Number: US-AMGEN-USASP2012077687

PATIENT
  Age: 59 Year
  Sex: Male

DRUGS (2)
  1. ARANESP [Suspect]
     Indication: ANAEMIA
  2. CYTOXAN [Concomitant]

REACTIONS (2)
  - Coronary artery disease [Unknown]
  - Drug ineffective [Unknown]
